FAERS Safety Report 8662433 (Version 3)
Quarter: 2013Q4

REPORT INFORMATION
  Report Type: Report from Study
  Country: MX (occurrence: MX)
  Receive Date: 20120712
  Receipt Date: 20131028
  Transmission Date: 20140711
  Serious: Yes (Hospitalization)
  Sender: FDA-Public Use
  Company Number: MX-BRISTOL-MYERS SQUIBB COMPANY-16743874

PATIENT
  Age: 67 Year
  Sex: Male
  Weight: 55 kg

DRUGS (8)
  1. ERBITUX [Suspect]
     Indication: SQUAMOUS CELL CARCINOMA OF HEAD AND NECK
     Dosage: REG2:250MG/M2,WKLY DAY1,D15,IV:28JUN2012-ONG.
     Route: 042
     Dates: start: 20120612
  2. CISPLATIN [Suspect]
     Indication: SQUAMOUS CELL CARCINOMA OF HEAD AND NECK
     Dosage: DAY:1,LAST DOSE:12JUN2012
     Route: 042
     Dates: start: 20120612
  3. 5-FLUOROURACIL [Suspect]
     Indication: SQUAMOUS CELL CARCINOMA OF HEAD AND NECK
     Dosage: DAY 1-4, LAST DOSE:15JUN2012.
     Route: 042
     Dates: start: 20120612
  4. METFORMIN [Concomitant]
     Indication: TYPE 2 DIABETES MELLITUS
  5. GLIBENCLAMIDE [Concomitant]
     Indication: TYPE 2 DIABETES MELLITUS
  6. ENALAPRIL [Concomitant]
     Indication: HYPERTENSION
  7. TRAMADOL [Concomitant]
  8. OMEPRAZOLE [Concomitant]

REACTIONS (3)
  - Mucosal inflammation [Recovered/Resolved]
  - Dehydration [Recovered/Resolved]
  - Thrombosis in device [Recovered/Resolved]
